FAERS Safety Report 18916284 (Version 1)
Quarter: 2021Q1

REPORT INFORMATION
  Report Type: Spontaneous
  Country: AR (occurrence: AR)
  Receive Date: 20210219
  Receipt Date: 20210219
  Transmission Date: 20210420
  Serious: Yes (Other)
  Sender: FDA-Public Use
  Company Number: AR-PFIZER INC-2021136590

PATIENT
  Age: 69 Year
  Sex: Male

DRUGS (1)
  1. SUTENT [Suspect]
     Active Substance: SUNITINIB MALATE
     Indication: METASTATIC RENAL CELL CARCINOMA
     Dosage: 50 MG, DAILY (SCHEME UNKNOWN)
     Dates: start: 20200604

REACTIONS (5)
  - Second primary malignancy [Unknown]
  - Cardiac disorder [Unknown]
  - Prostate cancer [Unknown]
  - Urinary tract disorder [Unknown]
  - Lung cyst [Unknown]
